FAERS Safety Report 6676238-X (Version None)
Quarter: 2010Q2

REPORT INFORMATION
  Report Type: 
  Country: None (occurrence: None)
  Receive Date: 20100412
  Receipt Date: 20100330
  Transmission Date: 20101027
  Serious: No
  Sender: FDA-Public Use
  Company Number: US-B.I. PHARMACEUTICALS,INC./RIDGEFIELD-2010-BP-02828BP

PATIENT
  Age: 64 Year
  Sex: Female
  Weight: 64.41 kg

DRUGS (1)
  1. TWYNSTA [Suspect]
     Indication: HYPERTENSION
     Dates: start: 20100121, end: 20100226

REACTIONS (3)
  - DIZZINESS [None]
  - TINNITUS [None]
  - VISION BLURRED [None]
